FAERS Safety Report 5232804-X (Version None)
Quarter: 2007Q1

REPORT INFORMATION
  Report Type: 
  Country: None (occurrence: None)
  Receive Date: 20070206
  Receipt Date: 20070206
  Transmission Date: 20070707
  Serious: Yes (Life-Threatening, Hospitalization, Disabling)
  Sender: FDA-Public Use
  Company Number: None

PATIENT
  Sex: Male

DRUGS (2)
  1. ZYVOX [Suspect]
     Indication: PNEUMONIA STAPHYLOCOCCAL
     Dosage: 600 MG Q12H IV
     Route: 042
     Dates: start: 20061203, end: 20061204
  2. REGLAN [Suspect]
     Dosage: AC AND HS IV
     Route: 042
     Dates: start: 20061126, end: 20061204

REACTIONS (2)
  - HYPERTHERMIA MALIGNANT [None]
  - SEROTONIN SYNDROME [None]
